FAERS Safety Report 24184786 (Version 2)
Quarter: 2024Q3

REPORT INFORMATION
  Report Type: Spontaneous
  Country: CO (occurrence: CO)
  Receive Date: 20240807
  Receipt Date: 20240923
  Transmission Date: 20241017
  Serious: No
  Sender: PFIZER
  Company Number: CO-PFIZER INC-PV202400101664

PATIENT
  Age: 9 Year
  Sex: Female

DRUGS (1)
  1. GENOTROPIN [Suspect]
     Active Substance: SOMATROPIN
     Dosage: 0.6 MG, DAILY
     Route: 058

REACTIONS (5)
  - Product dispensing error [Unknown]
  - Poor quality device used [Unknown]
  - Drug administered in wrong device [Unknown]
  - Device leakage [Unknown]
  - Device loosening [Unknown]
